FAERS Safety Report 9426051 (Version 1)
Quarter: 2013Q3

REPORT INFORMATION
  Report Type: Spontaneous
  Country: AU (occurrence: AU)
  Receive Date: 20130730
  Receipt Date: 20130730
  Transmission Date: 20140515
  Serious: Yes (Hospitalization)
  Sender: FDA-Public Use
  Company Number: AU-009507513-1307AUS007954

PATIENT
  Age: 5 Year
  Sex: Male

DRUGS (1)
  1. LORATADINE [Suspect]
     Indication: DRUG HYPERSENSITIVITY
     Dosage: 25 MG NOT 2.5MG, SYSTEMIC
     Route: 048

REACTIONS (6)
  - Overdose [Unknown]
  - Somnolence [Unknown]
  - Abdominal discomfort [Unknown]
  - Dry mouth [Unknown]
  - Drug administration error [Unknown]
  - Agitation [Unknown]
